FAERS Safety Report 9224469 (Version 1)
Quarter: 2013Q2

REPORT INFORMATION
  Report Type: Spontaneous
  Country: US (occurrence: None)
  Receive Date: 20130409
  Receipt Date: 20130409
  Transmission Date: 20140414
  Serious: Yes (Other)
  Sender: FDA-Public Use
  Company Number: None

PATIENT
  Age: 62 Year
  Sex: Male
  Weight: 92.99 kg

DRUGS (1)
  1. CYCLOSET [Suspect]
     Indication: DIABETES MELLITUS
     Dosage: .8MG, 4 PO
     Route: 048
     Dates: start: 20130315, end: 20130401

REACTIONS (5)
  - Chest pain [None]
  - Fatigue [None]
  - Abdominal discomfort [None]
  - Vomiting [None]
  - Blood glucose increased [None]
